FAERS Safety Report 22588613 (Version 1)
Quarter: 2023Q2

REPORT INFORMATION
  Report Type: Spontaneous
  Country: US (occurrence: None)
  Receive Date: 20230608
  Receipt Date: 20230608
  Transmission Date: 20230722
  Serious: No
  Sender: FDA-Public Use
  Company Number: None

PATIENT
  Age: 85 Year
  Sex: Female
  Weight: 84.82 kg

DRUGS (1)
  1. STIOLTO RESPIMAT [Suspect]
     Active Substance: OLODATEROL HYDROCHLORIDE\TIOTROPIUM BROMIDE MONOHYDRATE
     Indication: Chronic obstructive pulmonary disease
     Dosage: 2.5 MCG  PUFF 2X DAILY BY MOUTH ???
     Route: 048
     Dates: end: 20230601

REACTIONS (7)
  - Bronchitis [None]
  - Agitation [None]
  - Aggression [None]
  - Dysgeusia [None]
  - Fear [None]
  - Bronchial disorder [None]
  - Breath odour [None]

NARRATIVE: CASE EVENT DATE: 20230501
